FAERS Safety Report 7712495-6 (Version None)
Quarter: 2011Q3

REPORT INFORMATION
  Report Type: 
  Country: None (occurrence: None)
  Receive Date: 20110826
  Receipt Date: 20110826
  Transmission Date: 20111222
  Serious: Yes (Other)
  Sender: FDA-Public Use
  Company Number: None

PATIENT
  Age: 78 Year
  Sex: Male
  Weight: 105.23 kg

DRUGS (1)
  1. PRADAXA [Suspect]
     Indication: ATRIAL FIBRILLATION
     Dosage: 150MG
     Route: 048
     Dates: start: 20110501, end: 20110817

REACTIONS (4)
  - PURPURA [None]
  - THROMBOCYTOPENIA [None]
  - PLATELET MORPHOLOGY ABNORMAL [None]
  - HAEMOGLOBIN DECREASED [None]
